FAERS Safety Report 7877698-9 (Version None)
Quarter: 2011Q4

REPORT INFORMATION
  Report Type: 
  Country: None (occurrence: None)
  Receive Date: 20111031
  Receipt Date: 20111031
  Transmission Date: 20120403
  Serious: Yes (Disabling, Other)
  Sender: FDA-Public Use
  Company Number: None

PATIENT
  Sex: Female
  Weight: 79.378 kg

DRUGS (1)
  1. MICARDIS HCT [Suspect]
     Indication: HYPERTENSION
     Dosage: 1
     Dates: start: 20071201, end: 20110401

REACTIONS (7)
  - ARTHRALGIA [None]
  - SYSTEMIC LUPUS ERYTHEMATOSUS [None]
  - EYE PAIN [None]
  - PAIN [None]
  - ABDOMINAL PAIN UPPER [None]
  - TONGUE DRY [None]
  - FEELING ABNORMAL [None]
